FAERS Safety Report 4341638-X (Version None)
Quarter: 2004Q2

REPORT INFORMATION
  Report Type: 
  Country: None (occurrence: None)
  Receive Date: 20040415
  Receipt Date: 20040331
  Transmission Date: 20050107
  Serious: Yes (Other)
  Sender: FDA-Public Use
  Company Number: USA040463692

PATIENT
  Sex: Female

DRUGS (1)
  1. FORTEO [Suspect]
     Dates: start: 20030101

REACTIONS (7)
  - ARTHRITIS [None]
  - BLOOD MERCURY ABNORMAL [None]
  - DEATH OF CHILD [None]
  - INJECTION SITE PAIN [None]
  - LYME DISEASE [None]
  - PHARMACEUTICAL PRODUCT COMPLAINT [None]
  - TREATMENT NONCOMPLIANCE [None]
